FAERS Safety Report 10003304 (Version 2)
Quarter: 2014Q2

REPORT INFORMATION
  Report Type: Spontaneous
  Country: US (occurrence: US)
  Receive Date: 20140312
  Receipt Date: 20140424
  Transmission Date: 20141212
  Serious: No
  Sender: FDA-Public Use
  Company Number: US-PFIZER INC-2014063856

PATIENT
  Sex: Female

DRUGS (9)
  1. DOXYCYCLINE HYCLATE [Suspect]
     Dosage: UNK
  2. TRAMADOL HYDROCHLORIDE [Suspect]
     Dosage: UNK
  3. OXYCONTIN [Suspect]
     Dosage: UNK
  4. TALWIN [Suspect]
     Dosage: UNK
  5. CODEINE [Suspect]
     Dosage: UNK
  6. IODINE [Suspect]
     Dosage: UNK
  7. ASPIRIN [Suspect]
     Dosage: UNK
  8. LORTAB [Suspect]
     Dosage: UNK
  9. FIORINAL [Suspect]
     Dosage: UNK

REACTIONS (1)
  - Drug hypersensitivity [Unknown]
